FAERS Safety Report 21172454 (Version 1)
Quarter: 2022Q3

REPORT INFORMATION
  Report Type: Spontaneous
  Country: US (occurrence: None)
  Receive Date: 20220803
  Receipt Date: 20220803
  Transmission Date: 20221026
  Serious: Yes (Other)
  Sender: FDA-Public Use
  Company Number: None

PATIENT
  Age: 54 Year
  Sex: Female
  Weight: 63.3 kg

DRUGS (3)
  1. INFLECTRA [Suspect]
     Active Substance: INFLIXIMAB-DYYB
     Indication: Crohn^s disease
     Dosage: 300 MG EVERY 8 WEEKS INTRAVENOUS DRIP?
     Route: 041
     Dates: start: 20220419
  2. MESALAMINE [Concomitant]
     Active Substance: MESALAMINE
  3. LOPERAMIDE [Concomitant]
     Active Substance: LOPERAMIDE

REACTIONS (5)
  - Seizure [None]
  - Dizziness [None]
  - Dizziness [None]
  - Infusion related reaction [None]
  - Syncope [None]

NARRATIVE: CASE EVENT DATE: 20220729
